FAERS Safety Report 24811196 (Version 1)
Quarter: 2025Q1

REPORT INFORMATION
  Report Type: Spontaneous
  Country: FR (occurrence: FR)
  Receive Date: 20250106
  Receipt Date: 20250106
  Transmission Date: 20250409
  Serious: Yes (Other)
  Sender: MYLAN
  Company Number: None

PATIENT
  Age: 50 Year
  Sex: Female
  Weight: 66.5 kg

DRUGS (3)
  1. VORICONAZOLE [Suspect]
     Active Substance: VORICONAZOLE
     Indication: Aspergillus test positive
     Dosage: 800 MILLIGRAM, BID (400 MG X 2 THEN 280 MG X 2)
     Route: 048
     Dates: start: 20241212, end: 20241216
  2. PIPERACILLIN SODIUM\TAZOBACTAM SODIUM [Suspect]
     Active Substance: PIPERACILLIN SODIUM\TAZOBACTAM SODIUM
     Indication: Product used for unknown indication
     Dosage: 4 GRAM, QID (4 G X 4/D )
     Route: 042
     Dates: start: 20241209, end: 20241217
  3. VORICONAZOLE [Suspect]
     Active Substance: VORICONAZOLE
     Indication: Aspergillus test positive
     Dosage: 280 MILLIGRAM, BID (400 MG X 2 THEN 280 MG X 2)
     Route: 048
     Dates: start: 20241212, end: 20241216

REACTIONS (1)
  - Hepatic cytolysis [Recovered/Resolved]

NARRATIVE: CASE EVENT DATE: 20241213
